FAERS Safety Report 16874411 (Version 1)
Quarter: 2019Q4

REPORT INFORMATION
  Report Type: Spontaneous
  Country: FR (occurrence: FR)
  Receive Date: 20191001
  Receipt Date: 20191001
  Transmission Date: 20200122
  Serious: Yes (Death, Other)
  Sender: FDA-Public Use
  Company Number: FR-ASTRAZENECA-2019SF38355

PATIENT
  Age: 65 Year
  Sex: Female

DRUGS (2)
  1. LYNPARZA [Suspect]
     Active Substance: OLAPARIB
     Route: 048
     Dates: start: 2016
  2. LYNPARZA [Suspect]
     Active Substance: OLAPARIB
     Dosage: REDUCED DOSE
     Route: 048

REACTIONS (3)
  - Acute myeloid leukaemia [Fatal]
  - Anaemia [Fatal]
  - Neutropenia [Fatal]
